FAERS Safety Report 9918206 (Version 1)
Quarter: 2014Q1

REPORT INFORMATION
  Report Type: Spontaneous
  Country: IT (occurrence: IT)
  Receive Date: 20140223
  Receipt Date: 20140223
  Transmission Date: 20141002
  Serious: Yes (Other)
  Sender: FDA-Public Use
  Company Number: IT-MYLANLABS-2014S1003095

PATIENT
  Age: 62 Year
  Sex: Male

DRUGS (3)
  1. CLARITHROMYCIN [Suspect]
     Indication: INFLUENZA
     Dosage: 1 DF TOTAL
     Route: 048
     Dates: start: 20140110, end: 20140110
  2. ACETYLSALICYLIC ACID [Suspect]
     Indication: INFLUENZA
     Dosage: 1 DF TOTAL
     Route: 048
     Dates: start: 20140110, end: 20140110
  3. BISOLVON [Suspect]
     Indication: INFLUENZA
     Dosage: 1 DF TOTAL
     Route: 048
     Dates: start: 20140110, end: 20140110

REACTIONS (4)
  - Hypersensitivity [Recovering/Resolving]
  - Local swelling [Recovering/Resolving]
  - Pruritus [Recovering/Resolving]
  - Urticaria [Recovering/Resolving]
